FAERS Safety Report 4275922-5 (Version None)
Quarter: 2004Q1

REPORT INFORMATION
  Report Type: 
  Country: None (occurrence: None)
  Receive Date: 20040121
  Receipt Date: 20030317
  Transmission Date: 20041129
  Serious: No
  Sender: FDA-Public Use
  Company Number: US-GLAXOSMITHKLINE-A0400670A

PATIENT
  Age: 56 Year
  Sex: Female

DRUGS (2)
  1. VALTREX [Suspect]
     Dosage: 1CAP AT NIGHT
     Route: 048
     Dates: start: 20030201, end: 20030317
  2. HORMONES [Concomitant]

REACTIONS (2)
  - MUSCLE SPASMS [None]
  - SOFT TISSUE INFLAMMATION [None]
